FAERS Safety Report 4953132-3 (Version None)
Quarter: 2006Q1

REPORT INFORMATION
  Report Type: 
  Country: None (occurrence: None)
  Receive Date: 20060320
  Receipt Date: 20060307
  Transmission Date: 20060701
  Serious: Yes (Hospitalization, Other)
  Sender: FDA-Public Use
  Company Number: 200511771BWH

PATIENT
  Age: 46 Year
  Sex: Male
  Weight: 111.1313 kg

DRUGS (8)
  1. LEVITRA [Suspect]
     Indication: ERECTILE DYSFUNCTION
     Dosage: 10 MG, TOTAL DAILY, ORAL
     Route: 048
     Dates: start: 20050201, end: 20050801
  2. VIVACTIL [Concomitant]
  3. CYMBALTA [Concomitant]
  4. PROTONIX [Concomitant]
  5. TOPAMAX [Concomitant]
  6. TRICOR [Concomitant]
  7. HYDROCODONE W/APAP [Concomitant]
  8. CLONAZEPAM [Concomitant]

REACTIONS (27)
  - ANXIETY [None]
  - ARTHRALGIA [None]
  - ASTHENIA [None]
  - BLINDNESS UNILATERAL [None]
  - DEAFNESS UNILATERAL [None]
  - DIARRHOEA [None]
  - DIZZINESS [None]
  - DYSPEPSIA [None]
  - DYSPNOEA [None]
  - EXERCISE TOLERANCE DECREASED [None]
  - FATIGUE [None]
  - HEADACHE [None]
  - HYPERCOAGULATION [None]
  - INTRACRANIAL ANEURYSM [None]
  - MUSCLE SPASMS [None]
  - NERVOUSNESS [None]
  - NOCTURIA [None]
  - OPTIC ISCHAEMIC NEUROPATHY [None]
  - OPTIC NEURITIS [None]
  - PERSONALITY CHANGE [None]
  - PHOTOPSIA [None]
  - SCOTOMA [None]
  - SLUGGISHNESS [None]
  - SUICIDAL IDEATION [None]
  - THIRST [None]
  - VASCULITIS [None]
  - VISUAL FIELD DEFECT [None]
